FAERS Safety Report 6520407-6 (Version None)
Quarter: 2009Q4

REPORT INFORMATION
  Report Type: 
  Country: None (occurrence: None)
  Receive Date: 20091229
  Receipt Date: 20091221
  Transmission Date: 20100525
  Serious: Yes (Other)
  Sender: FDA-Public Use
  Company Number: DE-ROCHE-675915

PATIENT
  Age: 51 Year
  Sex: Male

DRUGS (1)
  1. AVASTIN [Suspect]
     Indication: PSEUDOXANTHOMA ELASTICUM
     Route: 031

REACTIONS (1)
  - OPTIC ISCHAEMIC NEUROPATHY [None]
